FAERS Safety Report 5498228-5 (Version None)
Quarter: 2007Q4

REPORT INFORMATION
  Report Type: 
  Country: None (occurrence: None)
  Receive Date: 20071025
  Receipt Date: 20070614
  Transmission Date: 20080405
  Serious: No
  Sender: FDA-Public Use
  Company Number: A0647423A

PATIENT
  Age: 64 Year
  Sex: Female

DRUGS (5)
  1. ADVAIR DISKUS 100/50 [Suspect]
     Indication: ASTHMA
     Dosage: 1PUFF TWICE PER DAY
     Route: 055
     Dates: start: 20010101
  2. NASONEX [Concomitant]
  3. PRILOSEC [Concomitant]
  4. CHOLESTYRAMINE [Concomitant]
  5. MAXAIR [Concomitant]

REACTIONS (6)
  - ASTHENIA [None]
  - BRONCHITIS [None]
  - COUGH [None]
  - DYSPNOEA [None]
  - PYREXIA [None]
  - WHEEZING [None]
